FAERS Safety Report 6646478-4 (Version None)
Quarter: 2010Q1

REPORT INFORMATION
  Report Type: 
  Country: None (occurrence: None)
  Receive Date: 20100323
  Receipt Date: 20100311
  Transmission Date: 20100710
  Serious: Yes (Other)
  Sender: FDA-Public Use
  Company Number: ES-WATSON-2010-03017

PATIENT
  Age: 48 Year
  Sex: Male

DRUGS (3)
  1. BETAMETHASONE SODIUM PHOSPHATE [Suspect]
     Indication: PAIN
     Dosage: 6 MG, SINGLE
     Route: 030
  2. CIPROFLOXACIN HCL [Suspect]
     Indication: OTITIS MEDIA
     Dosage: 500 MG, BID (Q12H)
     Route: 048
  3. MOXIFLOXACIN HCL [Suspect]
     Indication: OTITIS MEDIA
     Route: 048

REACTIONS (1)
  - TENDON RUPTURE [None]
